FAERS Safety Report 6310452-8 (Version None)
Quarter: 2009Q3

REPORT INFORMATION
  Report Type: 
  Country: None (occurrence: None)
  Receive Date: 20090814
  Receipt Date: 20090804
  Transmission Date: 20100115
  Serious: Yes (Death)
  Sender: FDA-Public Use
  Company Number: US-ROCHE-643443

PATIENT
  Sex: Female
  Weight: 71.7 kg

DRUGS (1)
  1. CAPECITABINE [Suspect]
     Indication: BREAST CANCER
     Dosage: DOSE REPORTED AS 500 MG ^3 IN MORNING AND 3 IN EVENING^
     Route: 048
     Dates: start: 20080411

REACTIONS (1)
  - BREAST CANCER METASTATIC [None]
